FAERS Safety Report 7218836-0 (Version None)
Quarter: 2011Q1

REPORT INFORMATION
  Report Type: 
  Country: None (occurrence: None)
  Receive Date: 20110110
  Receipt Date: 20110103
  Transmission Date: 20110831
  Serious: No
  Sender: FDA-Public Use
  Company Number: US-PFIZER INC-2011002745

PATIENT
  Sex: Female

DRUGS (1)
  1. ADVIL PM [Suspect]
     Indication: BACK PAIN
     Dosage: 1 TABLET, 1X/DAY
     Route: 048
     Dates: start: 20101223, end: 20101229

REACTIONS (1)
  - DRUG INEFFECTIVE [None]
